FAERS Safety Report 12967798 (Version 4)
Quarter: 2017Q1

REPORT INFORMATION
  Report Type: Spontaneous
  Country: US (occurrence: US)
  Receive Date: 20161123
  Receipt Date: 20170113
  Transmission Date: 20170428
  Serious: No
  Sender: FDA-Public Use
  Company Number: US-PFIZER INC-2016536092

PATIENT
  Age: 50 Year
  Sex: Female
  Weight: 100 kg

DRUGS (6)
  1. ENBREL [Suspect]
     Active Substance: ETANERCEPT
     Dosage: UNK
  2. HUMIRA [Suspect]
     Active Substance: ADALIMUMAB
     Dosage: UNK
  3. XELJANZ [Suspect]
     Active Substance: TOFACITINIB CITRATE
     Dosage: UNK
  4. CYCLOBENZAPRINE [Suspect]
     Active Substance: CYCLOBENZAPRINE
     Dosage: UNK
  5. PREDNISONE. [Suspect]
     Active Substance: PREDNISONE
     Indication: PAIN
     Dosage: 10 MG, DAILY
     Route: 048
     Dates: start: 20151028
  6. TRAMADOL. [Suspect]
     Active Substance: TRAMADOL
     Indication: PAIN
     Dosage: 50 MG, AS NEEDED (1 TABLET BY ORAL ROUTE EVERY 6 HOURS AS NEEDED)
     Route: 048
     Dates: start: 20160917

REACTIONS (2)
  - Infection [Unknown]
  - Drug ineffective [Unknown]
